FAERS Safety Report 24000504 (Version 1)
Quarter: 2024Q2

REPORT INFORMATION
  Report Type: Spontaneous
  Country: CH (occurrence: CH)
  Receive Date: 20240621
  Receipt Date: 20240621
  Transmission Date: 20240715
  Serious: No
  Sender: FDA-Public Use
  Company Number: CH-PHARMAMAR-2024PM000044

PATIENT
  Age: 56 Year
  Sex: Female

DRUGS (1)
  1. ZEPZELCA [Suspect]
     Active Substance: LURBINECTEDIN
     Indication: Metastases to central nervous system
     Dosage: 4.5 MILLIGRAM 3 CYCLES
     Route: 042
     Dates: start: 20240314, end: 20240417

REACTIONS (1)
  - Off label use [Unknown]
